FAERS Safety Report 8987339 (Version 1)
Quarter: 2012Q4

REPORT INFORMATION
  Report Type: 
  Country: FI (occurrence: FI)
  Receive Date: 20121226
  Receipt Date: 20121226
  Transmission Date: 20130627
  Serious: Yes (Life-Threatening, Other)
  Sender: FDA-Public Use
  Company Number: FI-ROCHE-1173185

PATIENT
  Age: 49 Year
  Sex: Female

DRUGS (2)
  1. AVASTIN [Suspect]
     Indication: FALLOPIAN TUBE CANCER
     Route: 042
     Dates: start: 20120126, end: 20121126
  2. LIPODOX [Concomitant]
     Indication: FALLOPIAN TUBE CANCER
     Route: 042
     Dates: start: 20121029

REACTIONS (3)
  - Small intestinal perforation [Not Recovered/Not Resolved]
  - Peritonitis [Not Recovered/Not Resolved]
  - Lymphangiosis carcinomatosa [Unknown]
